FAERS Safety Report 4487105-4 (Version None)
Quarter: 2004Q4

REPORT INFORMATION
  Report Type: 
  Country: None (occurrence: None)
  Receive Date: 20041027
  Receipt Date: 20041020
  Transmission Date: 20050328
  Serious: Yes (Hospitalization)
  Sender: FDA-Public Use
  Company Number: DE-GLAXOSMITHKLINE-B0348756A

PATIENT
  Age: 63 Year
  Sex: Male
  Weight: 73 kg

DRUGS (8)
  1. TOPOTECAN [Suspect]
     Dosage: 1MGM2 PER DAY
     Route: 042
     Dates: start: 20040930, end: 20041002
  2. DECORTIN [Concomitant]
  3. BERODUAL [Concomitant]
  4. METOCLOPRAMIDE [Concomitant]
  5. PARACODIN BITARTRATE TAB [Concomitant]
  6. PANTOPRAZOLE SODIUM [Concomitant]
  7. LEFAX [Concomitant]
  8. DEXAMETHASONE [Concomitant]

REACTIONS (3)
  - ATRIAL FIBRILLATION [None]
  - SINUS RHYTHM [None]
  - TACHYARRHYTHMIA [None]
